FAERS Safety Report 25228616 (Version 3)
Quarter: 2025Q3

REPORT INFORMATION
  Report Type: Spontaneous
  Country: EU (occurrence: EU)
  Receive Date: 20250423
  Receipt Date: 20250810
  Transmission Date: 20251020
  Serious: No
  Sender: ALEXION PHARMACEUTICALS
  Company Number: EU-AstraZeneca-CH-00838837AP

PATIENT
  Age: 92 Year
  Sex: Female
  Weight: 45 kg

DRUGS (1)
  1. PULMICORT TURBUHALER [Suspect]
     Active Substance: BUDESONIDE
     Indication: Prophylaxis
     Dosage: 400 MICROGRAM, BID
     Dates: start: 202401

REACTIONS (3)
  - Product quality issue [Recovered/Resolved]
  - Device difficult to use [Unknown]
  - Wrong technique in device usage process [Unknown]

NARRATIVE: CASE EVENT DATE: 20250331
